FAERS Safety Report 5709418-8 (Version None)
Quarter: 2008Q2

REPORT INFORMATION
  Report Type: 
  Country: None (occurrence: None)
  Receive Date: 20080418
  Receipt Date: 20080414
  Transmission Date: 20081010
  Serious: Yes (Life-Threatening)
  Sender: FDA-Public Use
  Company Number: IT-ASTRAZENECA-2008SE01920

PATIENT
  Age: 64 Year
  Sex: Female

DRUGS (1)
  1. NOLVADEX [Suspect]
     Indication: BREAST CANCER
     Route: 048
     Dates: start: 20071005, end: 20071204

REACTIONS (2)
  - PSYCHOTIC DISORDER [None]
  - PULMONARY EMBOLISM [None]
